FAERS Safety Report 10839453 (Version 1)
Quarter: 2015Q1

REPORT INFORMATION
  Report Type: Report from Study
  Country: US (occurrence: US)
  Receive Date: 20150220
  Receipt Date: 20150220
  Transmission Date: 20150721
  Serious: No
  Sender: FDA-Public Use
  Company Number: US-ABBVIE-14P-163-1232098-00

PATIENT
  Age: 24 Year
  Sex: Male

DRUGS (2)
  1. GENERIC VICODIN [Concomitant]
     Indication: PAIN
     Dosage: 5/300 MG ONE TABLET EVERY SIX HOURS
  2. HUMIRA [Suspect]
     Active Substance: ADALIMUMAB
     Indication: CROHN^S DISEASE
     Dates: start: 20140109

REACTIONS (1)
  - Oral herpes [Not Recovered/Not Resolved]

NARRATIVE: CASE EVENT DATE: 201404
